FAERS Safety Report 17593765 (Version 1)
Quarter: 2020Q1

REPORT INFORMATION
  Report Type: Spontaneous
  Country: DE (occurrence: DE)
  Receive Date: 20200327
  Receipt Date: 20200327
  Transmission Date: 20200409
  Serious: Yes (Other)
  Sender: FDA-Public Use
  Company Number: DE-MYLANLABS-2020M1032179

PATIENT
  Age: 27 Month
  Sex: Female
  Weight: 12 kg

DRUGS (3)
  1. RECTODELT [Concomitant]
     Active Substance: PREDNISONE
     Indication: COUGH
     Dosage: DAILY DOSE: 100 MG MILLGRAM(S) EVERY DAYS
     Route: 054
     Dates: start: 20191126, end: 20191126
  2. SALBUTAMOL [Suspect]
     Active Substance: ALBUTEROL
     Indication: DYSPNOEA
     Dosage: 1 DOSAGE FORM, QD(DAILY DOSE: 1 DF DOSAGE FORM EVERY DAYS)
     Route: 055
     Dates: start: 20191126
  3. BUDESONID [Concomitant]
     Active Substance: BUDESONIDE
     Indication: COUGH
     Dosage: DAILY DOSE: 0.2 MG MILLGRAM(S) EVERY DAYS
     Route: 055
     Dates: start: 20191126

REACTIONS (1)
  - Tachycardia [Recovered/Resolved]

NARRATIVE: CASE EVENT DATE: 20191126
